FAERS Safety Report 8422777-0 (Version None)
Quarter: 2012Q2

REPORT INFORMATION
  Report Type: 
  Country: None (occurrence: None)
  Receive Date: 20120608
  Receipt Date: 20120606
  Transmission Date: 20120825
  Serious: Yes (Life-Threatening, Other)
  Sender: FDA-Public Use
  Company Number: FR-MERCK-1206FRA00018

PATIENT
  Age: 11 Year
  Sex: Female

DRUGS (3)
  1. ALBUTEROL SULATE [Suspect]
     Indication: ASTHMA
     Route: 055
     Dates: start: 20080927, end: 20120203
  2. EBASTINE [Suspect]
     Indication: HYPERSENSITIVITY
     Route: 048
     Dates: start: 20101208, end: 20120203
  3. SINGULAIR [Suspect]
     Indication: ASTHMA
     Route: 048
     Dates: start: 20080312, end: 20120203

REACTIONS (1)
  - CHILDHOOD DEPRESSION [None]
